FAERS Safety Report 14320224 (Version 6)
Quarter: 2019Q1

REPORT INFORMATION
  Report Type: Report from Study
  Country: US (occurrence: US)
  Receive Date: 20171222
  Receipt Date: 20190318
  Transmission Date: 20190417
  Serious: Yes (Death, Other)
  Sender: FDA-Public Use
  Company Number: US-INCYTE CORPORATION-2017IN011051

PATIENT

DRUGS (8)
  1. PROBIOTICS                         /07325001/ [Concomitant]
     Active Substance: BIFIDOBACTERIUM LONGUM\LACTOBACILLUS ACIDOPHILUS\LACTOBACILLUS RHAMNOSUS
     Indication: PRODUCT USED FOR UNKNOWN INDICATION
     Dosage: 1 DF, QD
     Route: 048
  2. BISOPROLOL W/HYDROCHLOROTHIAZIDE   /01166101/ [Concomitant]
     Indication: PRODUCT USED FOR UNKNOWN INDICATION
     Dosage: 1 DF, QD
     Route: 048
  3. MULTIVITAMIN                       /07504101/ [Concomitant]
     Active Substance: VITAMINS
     Indication: PRODUCT USED FOR UNKNOWN INDICATION
     Dosage: 1 DF, QD
     Route: 048
  4. CORDARONE [Concomitant]
     Active Substance: AMIODARONE HYDROCHLORIDE
     Indication: PRODUCT USED FOR UNKNOWN INDICATION
     Dosage: 0.5 MG, QOD
     Route: 048
  5. PROCHLORPERAZINE MALEATE. [Concomitant]
     Active Substance: PROCHLORPERAZINE MALEATE
     Indication: NAUSEA
     Dosage: 10 MG, Q 4 HOURS, PRN
     Route: 048
  6. DIGOXIN. [Concomitant]
     Active Substance: DIGOXIN
     Indication: PRODUCT USED FOR UNKNOWN INDICATION
     Dosage: 250 MCG, QD (ONLY ON: SAT, SUN, MON, TUES, THURS)
     Route: 048
  7. PROVENTIL HFA [Concomitant]
     Active Substance: ALBUTEROL SULFATE
     Indication: PRODUCT USED FOR UNKNOWN INDICATION
     Dosage: 1 INHALATION AS DIRECTED
  8. JAKAFI [Suspect]
     Active Substance: RUXOLITINIB
     Indication: MYELOFIBROSIS
     Dosage: 5 MG, BID
     Route: 048
     Dates: start: 20170530, end: 20170815

REACTIONS (6)
  - Weight decreased [Fatal]
  - Decreased appetite [Fatal]
  - Anaemia [Not Recovered/Not Resolved]
  - Asthenia [Fatal]
  - Thrombocytopenia [Recovered/Resolved]
  - Thrombocytopenia [Not Recovered/Not Resolved]

NARRATIVE: CASE EVENT DATE: 20170411
